FAERS Safety Report 6684475-3 (Version None)
Quarter: 2010Q2

REPORT INFORMATION
  Report Type: 
  Country: None (occurrence: None)
  Receive Date: 20100416
  Receipt Date: 20100406
  Transmission Date: 20101027
  Serious: Yes (Hospitalization, Disabling)
  Sender: FDA-Public Use
  Company Number: DE-NAPPMUNDI-DEU-2010-0006133

PATIENT
  Age: 79 Year
  Sex: Female

DRUGS (7)
  1. SEVREDOL [Suspect]
     Indication: PAIN
  2. FENTANYL [Suspect]
     Indication: PAIN
     Dosage: 25 MCG, Q1H
     Route: 062
  3. NOVALGIN                           /06276704/ [Concomitant]
  4. PARACETAMOL [Concomitant]
  5. DULOXETINE HYDROCHLORIDE [Concomitant]
  6. HALOPERIDOL [Concomitant]
  7. AMITRIPTYLINE HCL [Concomitant]

REACTIONS (3)
  - COMA [None]
  - DISABILITY [None]
  - HALLUCINATION [None]
